FAERS Safety Report 7596637-1 (Version None)
Quarter: 2011Q3

REPORT INFORMATION
  Report Type: 
  Country: None (occurrence: None)
  Receive Date: 20110708
  Receipt Date: 20110628
  Transmission Date: 20111222
  Serious: Yes (Other)
  Sender: FDA-Public Use
  Company Number: AR-AMGEN-ARGSP2011024340

PATIENT
  Age: 40 Year
  Sex: Male

DRUGS (9)
  1. ENBREL [Suspect]
     Indication: RHEUMATOID ARTHRITIS
     Dosage: 25 MG, WEEKLY
     Route: 058
     Dates: start: 20060901
  2. ARTIFICIAL TEARS                   /00445101/ [Concomitant]
  3. CORTICOSTEROIDS [Concomitant]
     Dosage: UNK
  4. FOLIC ACID [Concomitant]
     Dosage: UNK
  5. ENBREL [Suspect]
     Dosage: 50 MG, WEEKLY
     Dates: start: 20090901
  6. METHOTREXATE [Concomitant]
     Dosage: 15 MG, WEEKLY
  7. ENBREL [Suspect]
     Dosage: UNK
  8. ETORICOXIB [Concomitant]
     Dosage: UNK
  9. PREDNISONE [Concomitant]
     Dosage: 10 MG TO 16 MG, 1X/DAY AT PERIODS

REACTIONS (5)
  - EPISCLERITIS [None]
  - OCULAR HYPERAEMIA [None]
  - INTRAOCULAR PRESSURE INCREASED [None]
  - SPLENECTOMY [None]
  - FELTY'S SYNDROME [None]
